FAERS Safety Report 7960631-9 (Version None)
Quarter: 2011Q4

REPORT INFORMATION
  Report Type: 
  Country: None (occurrence: None)
  Receive Date: 20111206
  Receipt Date: 20111129
  Transmission Date: 20120403
  Serious: Yes (Hospitalization)
  Sender: FDA-Public Use
  Company Number: DE-ASTRAZENECA-2011SE72305

PATIENT
  Age: 75 Year
  Sex: Female
  Weight: 60 kg

DRUGS (3)
  1. AMIODARONE HCL [Suspect]
     Indication: TACHYARRHYTHMIA
     Route: 048
     Dates: start: 20100801
  2. TICAGRELOR [Suspect]
     Route: 048
     Dates: start: 20110201, end: 20110417
  3. SIMVASTATIN [Suspect]
     Indication: CORONARY ARTERY DISEASE
     Route: 048
     Dates: start: 20090401, end: 20110417

REACTIONS (3)
  - MYOPATHY [None]
  - TRANSAMINASES INCREASED [None]
  - RHABDOMYOLYSIS [None]
